FAERS Safety Report 6420528-2 (Version None)
Quarter: 2009Q4

REPORT INFORMATION
  Report Type: 
  Country: None (occurrence: None)
  Receive Date: 20091027
  Receipt Date: 20091014
  Transmission Date: 20100525
  Serious: Yes (Hospitalization)
  Sender: FDA-Public Use
  Company Number: 2009AL006737

PATIENT
  Age: 71 Year
  Sex: Female

DRUGS (8)
  1. NAPROXEN [Suspect]
     Indication: OSTEOARTHRITIS
     Dosage: 250 MG; BID; PO
     Route: 048
  2. NIFEDIPINE [Suspect]
     Indication: HYPERTENSION
     Dosage: 30 MG; QD; PO
     Route: 048
  3. METHYLTESTOSTERONE [Concomitant]
  4. DOXYCYCLINE [Concomitant]
  5. DETRUSITOL [Concomitant]
  6. LEVOTHYROXINE SODIUM [Concomitant]
  7. FUROSEMIDE [Concomitant]
  8. LISINOPRIL [Concomitant]

REACTIONS (2)
  - ERYSIPELAS [None]
  - OEDEMA PERIPHERAL [None]
